FAERS Safety Report 10313778 (Version 1)
Quarter: 2014Q3

REPORT INFORMATION
  Report Type: Spontaneous
  Country: US (occurrence: US)
  Receive Date: 20140718
  Receipt Date: 20140718
  Transmission Date: 20150326
  Serious: Yes (Hospitalization, Other)
  Sender: FDA-Public Use
  Company Number: US-BANPHARM-20142869

PATIENT
  Age: 39 Year
  Sex: Female

DRUGS (3)
  1. LUPRON [Concomitant]
     Active Substance: LEUPROLIDE ACETATE
  2. PROGESTERONE UNKNOWN PRODUCT [Suspect]
     Active Substance: PROGESTERONE
     Indication: IN VITRO FERTILISATION
     Route: 030
  3. ESTERASE [Concomitant]

REACTIONS (3)
  - Echocardiogram abnormal [Recovered/Resolved]
  - Eosinophilic pneumonia [Recovered/Resolved]
  - Pleural effusion [Recovered/Resolved]
